FAERS Safety Report 21161826 (Version 2)
Quarter: 2022Q3

REPORT INFORMATION
  Report Type: Spontaneous
  Country: JP (occurrence: JP)
  Receive Date: 20220802
  Receipt Date: 20220819
  Transmission Date: 20221027
  Serious: No
  Sender: FDA-Public Use
  Company Number: JP-ABBVIE-22K-087-4489280-00

PATIENT

DRUGS (1)
  1. GLECAPREVIR\PIBRENTASVIR [Suspect]
     Active Substance: GLECAPREVIR\PIBRENTASVIR
     Indication: Product used for unknown indication
     Route: 048

REACTIONS (12)
  - Hepatitis B DNA increased [Unknown]
  - Dyspepsia [Unknown]
  - Dizziness [Unknown]
  - Blood bilirubin increased [Unknown]
  - Oedema [Unknown]
  - Malaise [Unknown]
  - Cystitis [Unknown]
  - Pruritus [Unknown]
  - Abdominal pain upper [Unknown]
  - Rash [Unknown]
  - Headache [Unknown]
  - Hepatitis [Unknown]
